FAERS Safety Report 5136554-X (Version None)
Quarter: 2006Q4

REPORT INFORMATION
  Report Type: 
  Country: None (occurrence: None)
  Receive Date: 20061027
  Receipt Date: 20061020
  Transmission Date: 20070319
  Serious: Yes (Hospitalization, Other)
  Sender: FDA-Public Use
  Company Number: JP-NOVOPROD-257938

PATIENT
  Age: 41 Year
  Sex: Female

DRUGS (2)
  1. NOVORAPID CHU PENFILL [Suspect]
     Route: 058
  2. LANTUS [Concomitant]
     Dosage: 24 IU, QD
     Route: 058

REACTIONS (5)
  - HYPOAESTHESIA [None]
  - HYPOGLYCAEMIA [None]
  - MEMORY IMPAIRMENT [None]
  - PARALYSIS FLACCID [None]
  - SOMNOLENCE [None]
